FAERS Safety Report 15290696 (Version 1)
Quarter: 2018Q3

REPORT INFORMATION
  Report Type: Report from Study
  Country: ES (occurrence: ES)
  Receive Date: 20180817
  Receipt Date: 20180817
  Transmission Date: 20181010
  Serious: Yes (Hospitalization)
  Sender: FDA-Public Use
  Company Number: ES-TEVA-2018-ES-943635

PATIENT
  Age: 19 Month
  Sex: Male
  Weight: 10.8 kg

DRUGS (8)
  1. ACICLOVIR (201A) [Concomitant]
     Active Substance: ACYCLOVIR
     Indication: PROPHYLAXIS
     Route: 048
     Dates: start: 20170811, end: 20170904
  2. FLUCONAZOL (2432A) [Concomitant]
     Active Substance: FLUCONAZOLE
     Dosage: 65 MILLIGRAM DAILY;
     Route: 048
     Dates: start: 20170811
  3. AMBISOME 50 MG POLVO PARA DISPERSI?N PARA PERFUSI?N , 10 VIALES [Concomitant]
     Dosage: 24 MILLIGRAM DAILY;
     Route: 055
     Dates: start: 20170816
  4. METILPREDNISOLONA (888A) [Concomitant]
     Active Substance: METHYLPREDNISOLONE
     Indication: ACUTE LYMPHOCYTIC LEUKAEMIA
     Dosage: 15 MILLIGRAM DAILY;
     Route: 042
     Dates: start: 20170811, end: 20170912
  5. SEPTRIN PEDIATRICO 8 MG/40 MG/ML SUSPENSION ORAL , 1 FRASCO DE 100 ML [Concomitant]
     Active Substance: SULFAMETHOXAZOLE\TRIMETHOPRIM
     Indication: PROPHYLAXIS
     Route: 048
     Dates: start: 20170811
  6. VINCRISTINA SULFATO (809SU) [Suspect]
     Active Substance: VINCRISTINE SULFATE
     Indication: ACUTE LYMPHOCYTIC LEUKAEMIA
     Route: 042
     Dates: start: 20170818, end: 20170901
  7. DAUNORUBICINA HIDROCLORURO (177CH) [Suspect]
     Active Substance: DAUNORUBICIN HYDROCHLORIDE
     Indication: ACUTE LYMPHOCYTIC LEUKAEMIA
     Dosage: 15.4 MILLIGRAM DAILY;
     Route: 042
     Dates: start: 20170818, end: 20170901
  8. ONCASPAR [Suspect]
     Active Substance: PEGASPARGASE
     Indication: ACUTE LYMPHOCYTIC LEUKAEMIA
     Dosage: 510 IU (INTERNATIONAL UNIT) DAILY;
     Route: 030
     Dates: start: 20170822, end: 20170822

REACTIONS (3)
  - Neuropathy peripheral [Recovered/Resolved]
  - Posterior reversible encephalopathy syndrome [Recovered/Resolved]
  - Hyponatraemia [Recovered/Resolved]

NARRATIVE: CASE EVENT DATE: 20170904
